FAERS Safety Report 7306874-9 (Version None)
Quarter: 2011Q1

REPORT INFORMATION
  Report Type: 
  Country: None (occurrence: None)
  Receive Date: 20110223
  Receipt Date: 20110209
  Transmission Date: 20110831
  Serious: Yes (Hospitalization, Other)
  Sender: FDA-Public Use
  Company Number: 174350

PATIENT
  Age: 53 Year
  Sex: Female

DRUGS (12)
  1. DILTIAZEM [Concomitant]
  2. LANOXIN [Concomitant]
  3. AVANDIA [Concomitant]
     Indication: DIABETES MELLITUS
  4. PRINIVIL [Concomitant]
  5. NOVOLIN N [Concomitant]
     Indication: DIABETES MELLITUS
  6. NOVOLIN R [Concomitant]
     Indication: DIABETES MELLITUS
  7. KLOR-CON [Concomitant]
  8. AVONEX [Suspect]
     Route: 030
     Dates: start: 20051115
  9. FUROSEMIDE [Concomitant]
  10. AVONEX [Suspect]
     Indication: MULTIPLE SCLEROSIS
     Route: 030
     Dates: start: 20010810, end: 20041215
  11. PROZAC [Concomitant]
  12. BACLOFEN [Concomitant]

REACTIONS (2)
  - BREAST CANCER IN SITU [None]
  - BREAST CANCER [None]
